FAERS Safety Report 14466246 (Version 1)
Quarter: 2018Q1

REPORT INFORMATION
  Report Type: Spontaneous
  Country: US (occurrence: US)
  Receive Date: 20180131
  Receipt Date: 20180131
  Transmission Date: 20180509
  Serious: Yes (Other)
  Sender: FDA-Public Use
  Company Number: US-CIPLA LTD.-2018US02415

PATIENT

DRUGS (5)
  1. LISINOPRIL. [Suspect]
     Active Substance: LISINOPRIL
     Dosage: 5 MG, UNK
     Route: 065
     Dates: start: 20180102
  2. LISINOPRIL. [Suspect]
     Active Substance: LISINOPRIL
     Indication: BLOOD PRESSURE INCREASED
     Dosage: 20 MG, UNK
     Route: 065
     Dates: start: 20171227
  3. GABAPENTIN. [Suspect]
     Active Substance: GABAPENTIN
     Dosage: 100 MG, UNK, FOR A COUPLE OF WEEKS
     Route: 065
     Dates: start: 201710
  4. GABAPENTIN. [Suspect]
     Active Substance: GABAPENTIN
     Dosage: 100 MG, BID
     Route: 065
     Dates: start: 201710, end: 20171231
  5. GABAPENTIN. [Suspect]
     Active Substance: GABAPENTIN
     Indication: MUSCULOSKELETAL PAIN
     Dosage: 300 MG, UNK
     Route: 065
     Dates: start: 201707, end: 201710

REACTIONS (18)
  - Insomnia [Recovering/Resolving]
  - Burning sensation [Not Recovered/Not Resolved]
  - Erythema of eyelid [Recovering/Resolving]
  - Palmar erythema [Recovering/Resolving]
  - Chills [Recovering/Resolving]
  - Confusional state [Recovering/Resolving]
  - Nervousness [Recovering/Resolving]
  - Restless legs syndrome [Not Recovered/Not Resolved]
  - Paraesthesia [Not Recovered/Not Resolved]
  - Gait disturbance [Recovering/Resolving]
  - Blood pressure increased [Recovering/Resolving]
  - Anxiety [Recovering/Resolving]
  - Blood pressure decreased [Unknown]
  - Pruritus generalised [Recovering/Resolving]
  - Dizziness [Recovering/Resolving]
  - Erythema [Unknown]
  - Tremor [Not Recovered/Not Resolved]
  - Blood cholesterol increased [Recovering/Resolving]

NARRATIVE: CASE EVENT DATE: 2017
